FAERS Safety Report 6359403-0 (Version None)
Quarter: 2009Q3

REPORT INFORMATION
  Report Type: 
  Country: None (occurrence: None)
  Receive Date: 20090914
  Receipt Date: 20090724
  Transmission Date: 20100115
  Serious: Yes (Other)
  Sender: FDA-Public Use
  Company Number: 2009SP018568

PATIENT
  Age: 82 Year
  Sex: Male
  Weight: 70 kg

DRUGS (6)
  1. DESLORATADINE [Suspect]
     Indication: EPISTAXIS
     Dosage: 5 MG; QD;
     Dates: start: 20090711, end: 20090716
  2. TRAVATAN [Concomitant]
  3. TIMOLOL [Concomitant]
  4. ATORVASTATIN [Concomitant]
  5. ENALAPRIL MALEATE [Concomitant]
  6. ASPIRIN [Concomitant]

REACTIONS (2)
  - DRUG HYPERSENSITIVITY [None]
  - HALLUCINATION, VISUAL [None]
